FAERS Safety Report 4724609-0 (Version None)
Quarter: 2005Q3

REPORT INFORMATION
  Report Type: 
  Country: None (occurrence: None)
  Receive Date: 20050719
  Receipt Date: 20050719
  Transmission Date: 20060218
  Serious: Yes (Life-Threatening, Hospitalization)
  Sender: FDA-Public Use
  Company Number: None

PATIENT
  Sex: Female
  Weight: 62.1 kg

DRUGS (2)
  1. CIPRO [Suspect]
     Indication: CELLULITIS
     Dosage: 500MG   BID   ORAL
     Route: 048
     Dates: start: 20050425, end: 20050602
  2. LEVAQUIN [Suspect]
     Indication: CELLULITIS
     Dosage: 500MG   DAILY   PARENTERAL
     Route: 051
     Dates: start: 20050616, end: 20050621

REACTIONS (11)
  - ACTIVATED PARTIAL THROMBOPLASTIN TIME PROLONGED [None]
  - DRUG DOSE OMISSION [None]
  - ECCHYMOSIS [None]
  - ERYTHEMA [None]
  - FACTOR VIII INHIBITION [None]
  - HAEMATOMA [None]
  - HAEMOPHILIA [None]
  - HAEMORRHAGE [None]
  - OEDEMA PERIPHERAL [None]
  - PULMONARY HAEMORRHAGE [None]
  - RESPIRATORY FAILURE [None]
